FAERS Safety Report 8068245-X (Version None)
Quarter: 2012Q1

REPORT INFORMATION
  Report Type: 
  Country: None (occurrence: None)
  Receive Date: 20120124
  Receipt Date: 20111010
  Transmission Date: 20120608
  Serious: No
  Sender: FDA-Public Use
  Company Number: US-AMGEN-USASP2011052210

PATIENT
  Sex: Female

DRUGS (8)
  1. PROLIA [Suspect]
     Indication: OSTEOPOROSIS POSTMENOPAUSAL
     Dates: start: 20110415
  2. METHIMAZOLE [Concomitant]
  3. COENZYME Q10 [Concomitant]
  4. CARTIA                             /00002701/ [Concomitant]
  5. VITAMIN B-12 [Concomitant]
  6. CALCIUM WITH VITAMIN D             /00944201/ [Concomitant]
     Dosage: UNK
  7. BIOTIN [Concomitant]
  8. FOLIC ACID [Concomitant]

REACTIONS (1)
  - BACK PAIN [None]
